FAERS Safety Report 10109889 (Version 2)
Quarter: 2014Q4

REPORT INFORMATION
  Report Type: Other
  Country: US (occurrence: US)
  Receive Date: 20140425
  Receipt Date: 20141021
  Transmission Date: 20150528
  Serious: Yes (Hospitalization, Other)
  Sender: FDA-Public Use
  Company Number: US-GSKPPD-2014GSK011066

PATIENT
  Age: 62 Year
  Sex: Male

DRUGS (7)
  1. PLAVIX [Concomitant]
     Active Substance: CLOPIDOGREL BISULFATE
     Dates: start: 200708
  2. NITROGLYCERIN. [Concomitant]
     Active Substance: NITROGLYCERIN
     Route: 060
  3. METOPROLOL [Concomitant]
     Active Substance: METOPROLOL
  4. ASPIRIN. [Concomitant]
     Active Substance: ASPIRIN
     Dates: start: 200708
  5. AVANDIA [Suspect]
     Active Substance: ROSIGLITAZONE MALEATE
     Indication: DIABETES MELLITUS
     Dosage: DATES OF AVANDIA USE COULD NOT BE CONFIRMED IN RECORDS REVIEWED
     Route: 048
  6. LASIX [Concomitant]
     Active Substance: FUROSEMIDE
  7. LOVENOX [Concomitant]
     Active Substance: ENOXAPARIN SODIUM
     Dosage: TREATMENT MEDICATION
     Dates: start: 200708

REACTIONS (1)
  - Acute myocardial infarction [Recovered/Resolved]

NARRATIVE: CASE EVENT DATE: 20070807
